FAERS Safety Report 9985827 (Version 1)
Quarter: 2014Q1

REPORT INFORMATION
  Report Type: Report from Study
  Country: US (occurrence: US)
  Receive Date: 20140307
  Receipt Date: 20140307
  Transmission Date: 20141002
  Serious: Yes (Other)
  Sender: FDA-Public Use
  Company Number: US-ABBVIE-13P-163-1084982-00

PATIENT
  Age: 58 Year
  Sex: Female

DRUGS (8)
  1. HUMIRA [Suspect]
     Indication: RHEUMATOID ARTHRITIS
     Route: 058
  2. HUMIRA [Suspect]
     Route: 058
     Dates: start: 201212, end: 201212
  3. HUMIRA [Suspect]
     Route: 058
     Dates: start: 201303
  4. ENBREL [Suspect]
     Indication: RHEUMATOID ARTHRITIS
     Dates: end: 201208
  5. ORENCIA [Suspect]
     Indication: RHEUMATOID ARTHRITIS
  6. UNKNOWN OTC MEDICATION [Concomitant]
     Indication: SEASONAL ALLERGY
  7. UNKNOWN MEDICATION [Concomitant]
     Indication: DIABETES MELLITUS
  8. INSULIN [Concomitant]
     Indication: DIABETES MELLITUS

REACTIONS (4)
  - Back pain [Recovering/Resolving]
  - Drug ineffective [Recovering/Resolving]
  - Nasopharyngitis [Recovered/Resolved]
  - Bronchitis [Recovered/Resolved]
